FAERS Safety Report 17439403 (Version 1)
Quarter: 2020Q1

REPORT INFORMATION
  Report Type: Spontaneous
  Country: US (occurrence: US)
  Receive Date: 20200219
  Receipt Date: 20200219
  Transmission Date: 20200409
  Serious: No
  Sender: FDA-Public Use
  Company Number: None

PATIENT
  Age: 64 Year
  Sex: Female
  Weight: 103.5 kg

DRUGS (8)
  1. ORENCIA INJECTIONS [Concomitant]
  2. VITAMIN E [Concomitant]
     Active Substance: .ALPHA.-TOCOPHEROL
  3. OMEPRAZOLE. [Concomitant]
     Active Substance: OMEPRAZOLE
  4. FISH OIL [Concomitant]
     Active Substance: FISH OIL
  5. LIVALO [Suspect]
     Active Substance: PITAVASTATIN CALCIUM
     Indication: BLOOD CHOLESTEROL INCREASED
     Dosage: ?          QUANTITY:1 TABLET(S);?
     Route: 048
     Dates: start: 20200202, end: 20200202
  6. HYDROXYCHLORIQUINE [Concomitant]
  7. LOSARTAN. [Concomitant]
     Active Substance: LOSARTAN
  8. LEVOTHYROXINE. [Concomitant]
     Active Substance: LEVOTHYROXINE

REACTIONS (4)
  - Mouth swelling [None]
  - Lip swelling [None]
  - Oral pain [None]
  - Swollen tongue [None]

NARRATIVE: CASE EVENT DATE: 20200202
